FAERS Safety Report 22223830 (Version 1)
Quarter: 2023Q2

REPORT INFORMATION
  Report Type: Spontaneous
  Country: US (occurrence: US)
  Receive Date: 20230418
  Receipt Date: 20230418
  Transmission Date: 20230721
  Serious: No
  Sender: FDA-Public Use
  Company Number: US-PFIZER INC-202300158030

PATIENT
  Age: 72 Year
  Sex: Female

DRUGS (1)
  1. IBRANCE [Suspect]
     Active Substance: PALBOCICLIB
     Dosage: 125 MG, 1X/DAY (1 EVERY DAY FOR 21 DAYS, FOLLOWED BY 7 DAYS)
     Dates: start: 20230301, end: 2023

REACTIONS (2)
  - Red blood cell count decreased [Not Recovered/Not Resolved]
  - Illness [Not Recovered/Not Resolved]

NARRATIVE: CASE EVENT DATE: 20230101
